FAERS Safety Report 18112612 (Version 2)
Quarter: 2020Q3

REPORT INFORMATION
  Report Type: Spontaneous
  Country: CZ (occurrence: CZ)
  Receive Date: 20200805
  Receipt Date: 20200807
  Transmission Date: 20201103
  Serious: Yes (Life-Threatening)
  Sender: FDA-Public Use
  Company Number: CZ-ACCORD-194179

PATIENT
  Age: 32 Year
  Sex: Male
  Weight: 93 kg

DRUGS (6)
  1. CALCIUM GLUCONATE. [Concomitant]
     Active Substance: CALCIUM GLUCONATE
     Dosage: IN 100ML
  2. CALCIUM FOLINATE SANDOZ [Concomitant]
     Active Substance: LEUCOVORIN CALCIUM
     Indication: CHEMOTHERAPY
     Route: 042
     Dates: start: 20200629, end: 20200727
  3. AKYNZEO [Concomitant]
     Active Substance: NETUPITANT\PALONOSETRON HYDROCHLORIDE
     Dosage: PREMEDICATION, 300/0,5MG
  4. MAGNESIUM SULFATE. [Concomitant]
     Active Substance: MAGNESIUM SULFATE
  5. DEXAMED [Concomitant]
     Dosage: PREMEDICATION, IN 100ML SALINE,
  6. OXALIPLATIN ACCORD [Suspect]
     Active Substance: OXALIPLATIN
     Indication: CHEMOTHERAPY
     Route: 042
     Dates: start: 20200629, end: 20200727

REACTIONS (5)
  - Hypotension [Recovered/Resolved]
  - Dizziness [Recovered/Resolved]
  - Acute respiratory failure [Recovered/Resolved]
  - Hypersensitivity [Recovered/Resolved]
  - Tachycardia [Recovered/Resolved]

NARRATIVE: CASE EVENT DATE: 20200727
